FAERS Safety Report 21121050 (Version 1)
Quarter: 2022Q3

REPORT INFORMATION
  Report Type: Spontaneous
  Country: US (occurrence: US)
  Receive Date: 20220722
  Receipt Date: 20220722
  Transmission Date: 20221026
  Serious: Yes (Hospitalization)
  Sender: FDA-Public Use
  Company Number: US-MIRM-000431

PATIENT
  Age: 9 Year
  Sex: Male

DRUGS (8)
  1. LIVMARLI [Suspect]
     Active Substance: MARALIXIBAT CHLORIDE
     Indication: Cholestatic pruritus
     Route: 048
     Dates: start: 202112, end: 20220406
  2. 1261244 (GLOBALC3Sep19): Pulmicort [Concomitant]
     Indication: Product used for unknown indication
  3. 1328777 (GLOBALC3Sep19): Ursodiol [Concomitant]
     Indication: Product used for unknown indication
  4. 2947835 (GLOBALC3Sep19): Cetirizine [Concomitant]
     Indication: Product used for unknown indication
  5. 1612169 (GLOBALC3Sep19): Amlodipine [Concomitant]
     Indication: Product used for unknown indication
  6. 1328876 (GLOBALC3Sep19): Vitamin D3 [Concomitant]
     Indication: Product used for unknown indication
  7. 1324661 (GLOBALC3Sep19): Albuterol [Concomitant]
     Indication: Product used for unknown indication
  8. 3834237 (GLOBALC3Sep19): Symbicort [Concomitant]
     Indication: Product used for unknown indication

REACTIONS (1)
  - Gastrointestinal haemorrhage [Unknown]

NARRATIVE: CASE EVENT DATE: 20220407
